FAERS Safety Report 6297868-3 (Version None)
Quarter: 2009Q3

REPORT INFORMATION
  Report Type: 
  Country: None (occurrence: None)
  Receive Date: 20090804
  Receipt Date: 20090804
  Transmission Date: 20100115
  Serious: Yes (Other)
  Sender: FDA-Public Use
  Company Number: None

PATIENT
  Age: 38 Year
  Sex: Female
  Weight: 71.6683 kg

DRUGS (2)
  1. AMLODIPINE BESYLATE [Suspect]
     Indication: HYPERTENSION
     Dosage: 1 TABLET, PER DAY, PO
     Route: 048
     Dates: start: 20090730, end: 20090801
  2. METOPROLOL 100MG HAYWARD PHARMACY [Suspect]
     Indication: HYPERTENSION
     Dosage: 1 TABLET, PER DAY, PO
     Route: 048
     Dates: start: 20090730, end: 20090801

REACTIONS (3)
  - DIZZINESS [None]
  - HEART RATE DECREASED [None]
  - VERTIGO [None]
